FAERS Safety Report 8472655-6 (Version None)
Quarter: 2012Q2

REPORT INFORMATION
  Report Type: 
  Country: None (occurrence: None)
  Receive Date: 20120627
  Receipt Date: 20120529
  Transmission Date: 20120825
  Serious: Yes (Hospitalization, Other)
  Sender: FDA-Public Use
  Company Number: US-AMGEN-USASP2012033687

PATIENT
  Sex: Female

DRUGS (2)
  1. EPOGEN [Suspect]
     Indication: DIALYSIS
     Dosage: 29700 IU, 3 TIMES/WK
     Dates: start: 20080101, end: 20120322
  2. ARANESP [Concomitant]

REACTIONS (1)
  - DRUG INEFFECTIVE [None]
